FAERS Safety Report 19003428 (Version 1)
Quarter: 2021Q1

REPORT INFORMATION
  Report Type: Report from Study
  Country: IE (occurrence: IE)
  Receive Date: 20210312
  Receipt Date: 20210312
  Transmission Date: 20210420
  Serious: Yes (Other)
  Sender: FDA-Public Use
  Company Number: PHHY2019IE228122

PATIENT
  Age: 80 Year
  Sex: Female

DRUGS (1)
  1. VOTRIENT [Suspect]
     Active Substance: PAZOPANIB HYDROCHLORIDE
     Indication: METASTATIC RENAL CELL CARCINOMA
     Dosage: 800 MG, QD
     Route: 065
     Dates: start: 20190927

REACTIONS (12)
  - Heart rate increased [Recovered/Resolved]
  - Vaginal haemorrhage [Recovered/Resolved]
  - Blood calcium decreased [Unknown]
  - Memory impairment [Unknown]
  - Blood pressure increased [Recovering/Resolving]
  - Liver function test increased [Recovering/Resolving]
  - Weight decreased [Unknown]
  - Blood pressure increased [Recovered/Resolved]
  - White blood cell count decreased [Recovered/Resolved]
  - Hepatic enzyme increased [Not Recovered/Not Resolved]
  - Fatigue [Not Recovered/Not Resolved]
  - Decreased appetite [Recovering/Resolving]

NARRATIVE: CASE EVENT DATE: 2019
